FAERS Safety Report 6276991-3 (Version None)
Quarter: 2009Q3

REPORT INFORMATION
  Report Type: 
  Country: None (occurrence: None)
  Receive Date: 20090722
  Receipt Date: 20081113
  Transmission Date: 20100115
  Serious: No
  Sender: FDA-Public Use
  Company Number: US-BRISTOL-MYERS SQUIBB COMPANY-14406193

PATIENT
  Age: 72 Year
  Sex: Female
  Weight: 55 kg

DRUGS (14)
  1. COUMADIN [Suspect]
     Indication: ATRIAL FIBRILLATION
     Dates: start: 20080911
  2. LOTREL [Concomitant]
  3. LIPITOR [Concomitant]
  4. COREG [Concomitant]
  5. QUINIDINE HCL [Concomitant]
  6. DIGOXIN [Concomitant]
  7. ARICEPT [Concomitant]
  8. LASIX [Concomitant]
  9. HYDRALAZINE HCL [Concomitant]
  10. SYNTHROID [Concomitant]
  11. DILANTIN [Concomitant]
  12. SEROQUEL [Concomitant]
  13. ZOLOFT [Concomitant]
  14. K-DUR [Concomitant]

REACTIONS (1)
  - INTERNATIONAL NORMALISED RATIO DECREASED [None]
